FAERS Safety Report 5923163-5 (Version None)
Quarter: 2008Q4

REPORT INFORMATION
  Report Type: 
  Country: None (occurrence: None)
  Receive Date: 20081020
  Receipt Date: 20080917
  Transmission Date: 20090506
  Serious: No
  Sender: FDA-Public Use
  Company Number: US-BAYER-200833831NA

PATIENT
  Age: 61 Year
  Sex: Male

DRUGS (4)
  1. LEVITRA [Suspect]
     Indication: ERECTILE DYSFUNCTION
     Route: 048
     Dates: start: 20060901, end: 20070901
  2. CRESTOR [Concomitant]
  3. NIASPAN [Concomitant]
  4. TESTOSTERONE INJECTION [Concomitant]

REACTIONS (1)
  - OCULAR HYPERAEMIA [None]
